FAERS Safety Report 11413331 (Version 1)
Quarter: 2015Q3

REPORT INFORMATION
  Report Type: Spontaneous
  Country: US (occurrence: US)
  Receive Date: 20150821
  Receipt Date: 20150821
  Transmission Date: 20151125
  Serious: No
  Sender: FDA-Public Use
  Company Number: US-ELI_LILLY_AND_COMPANY-US201106008495

PATIENT
  Sex: Female

DRUGS (4)
  1. NOVOLIN [Concomitant]
     Active Substance: INSULIN HUMAN
     Dosage: 12 U, EACH MORNING
  2. NOVOLIN [Concomitant]
     Active Substance: INSULIN HUMAN
     Dosage: 8 U, EACH EVENING
  3. NOVOLOG [Concomitant]
     Active Substance: INSULIN ASPART
     Dosage: UNK UNK, EACH EVENING
  4. HUMULIN 70/30 [Suspect]
     Active Substance: INSULIN HUMAN
     Indication: TYPE 2 DIABETES MELLITUS
     Dosage: UNK, PRN

REACTIONS (3)
  - Fatigue [Unknown]
  - Visual acuity reduced [Unknown]
  - Hyperhidrosis [Unknown]
